FAERS Safety Report 8644069 (Version 4)
Quarter: 2012Q4

REPORT INFORMATION
  Report Type: Report from Study
  Country: US (occurrence: US)
  Receive Date: 20120629
  Receipt Date: 20121003
  Transmission Date: 20130627
  Serious: Yes (Hospitalization, Other)
  Sender: FDA-Public Use
  Company Number: US-TEVA-345366USA

PATIENT
  Age: 67 Year
  Sex: Female
  Weight: 77 kg

DRUGS (22)
  1. TREANDA [Suspect]
     Indication: MULTIPLE MYELOMA
     Dosage: Days 1-2
     Route: 042
     Dates: start: 20120525, end: 20120526
  2. LENALIDOMIDE [Suspect]
     Dates: start: 20120525
  3. DEXAMETHASONE [Suspect]
     Dates: start: 20120525
  4. ACETYLSALICYLIC ACID [Concomitant]
     Dates: start: 20120217
  5. OMEPRAZOLE [Concomitant]
     Dates: start: 20060113
  6. AMITRIPTYLINE [Concomitant]
     Dates: start: 20060113
  7. OXYCODONE [Concomitant]
     Dates: start: 20060113
  8. OXYCODONE HYDROCHLORIDE [Concomitant]
     Dates: start: 20061024
  9. ACICLOVIR [Concomitant]
     Dates: start: 20060611
  10. FUROSEMIDE [Concomitant]
     Dates: start: 20060713
  11. DULOXETINE [Concomitant]
     Dates: start: 20111213
  12. WARFARIN SODIUM [Concomitant]
     Dates: start: 20120523
  13. VITACAL                            /01535001/ [Concomitant]
     Dates: start: 20120525
  14. CALCIUM ACETATE [Concomitant]
     Dates: start: 20120525
  15. METOPROLOL [Concomitant]
     Dates: start: 20120616
  16. POTASSIUM CHLORIDE [Concomitant]
     Dates: start: 20060611
  17. BACTRIM                            /00086101/ [Concomitant]
     Dates: start: 20110928
  18. ALLOPURINOL [Concomitant]
     Dates: start: 20120523
  19. ZOLPIDEM TARTRATE [Concomitant]
     Dates: start: 20060711
  20. PHENOXYMETHYLPENICILLIN POTASSIUM [Concomitant]
     Dates: start: 20120125
  21. PAMIDRONATE DISODIUM [Concomitant]
     Dates: start: 20120523
  22. SENOKOT-S [Concomitant]
     Dates: start: 20061024

REACTIONS (2)
  - Diarrhoea [Recovered/Resolved with Sequelae]
  - Dehydration [Recovered/Resolved]
